FAERS Safety Report 8187515-8 (Version None)
Quarter: 2012Q1

REPORT INFORMATION
  Report Type: 
  Country: None (occurrence: None)
  Receive Date: 20120302
  Receipt Date: 20120217
  Transmission Date: 20120608
  Serious: Yes (Other)
  Sender: FDA-Public Use
  Company Number: EU-2011-10226

PATIENT
  Sex: Female

DRUGS (19)
  1. MARCUMAR [Concomitant]
  2. NITROFURANTOIN (NITROFURANTOIN) TABLET [Concomitant]
  3. TRIAMTEREN (TRIAMTEREN) TABLET [Concomitant]
  4. UNACID PD (SULTAMICILLIN TOSILATE) TABLET [Concomitant]
  5. ZOPICLONE (ZOPICLONE) [Concomitant]
  6. SAMSCA [Suspect]
     Indication: INAPPROPRIATE ANTIDIURETIC HORMONE SECRETION
     Dosage: 15 MG MILLIGRAM(S), DAILY DOSE, ORAL 7.5 MG MILLIGRAM(S), QOD, ORAL
     Dates: start: 20101028, end: 20101105
  7. SAMSCA [Suspect]
     Indication: INAPPROPRIATE ANTIDIURETIC HORMONE SECRETION
     Dosage: 15 MG MILLIGRAM(S), DAILY DOSE, ORAL 7.5 MG MILLIGRAM(S), QOD, ORAL
     Dates: start: 20101117, end: 20110306
  8. SAMSCA [Suspect]
     Indication: INAPPROPRIATE ANTIDIURETIC HORMONE SECRETION
     Dosage: 15 MG MILLIGRAM(S), DAILY DOSE, ORAL 7.5 MG MILLIGRAM(S), QOD, ORAL
     Dates: start: 20110309
  9. SAMSCA [Suspect]
     Indication: INAPPROPRIATE ANTIDIURETIC HORMONE SECRETION
     Dosage: 15 MG MILLIGRAM(S), DAILY DOSE, ORAL 7.5 MG MILLIGRAM(S), QOD, ORAL
     Dates: start: 20101113, end: 20111016
  10. CLARITHROMYCIN [Concomitant]
  11. CEFTRIAXONE [Concomitant]
  12. DIGITOXIN TAB [Concomitant]
  13. PANTOPRAZOLE SODIUM [Concomitant]
  14. METOPROLOL SUCCINATE [Concomitant]
  15. SALINE (SALINE) [Concomitant]
  16. RAMIPRIL [Concomitant]
  17. SPIRONOLACTONE [Concomitant]
  18. CEFPODOXIME PROXETIL [Concomitant]
  19. HCT (HYDROCHLOROTHIAZIDE) TABLET [Concomitant]

REACTIONS (6)
  - BACK PAIN [None]
  - WRONG TECHNIQUE IN DRUG USAGE PROCESS [None]
  - PYREXIA [None]
  - CONDITION AGGRAVATED [None]
  - CHRONIC OBSTRUCTIVE PULMONARY DISEASE [None]
  - WEIGHT DECREASED [None]
